FAERS Safety Report 12250133 (Version 2)
Quarter: 2016Q2

REPORT INFORMATION
  Report Type: Spontaneous
  Country: US (occurrence: US)
  Receive Date: 20160408
  Receipt Date: 20160512
  Transmission Date: 20160815
  Serious: No
  Sender: FDA-Public Use
  Company Number: US-TOLMAR INC.-1050390

PATIENT
  Age: 41 Year
  Sex: Female
  Weight: 55.91 kg

DRUGS (2)
  1. ^CHOLESTEROL MEDICATION^ [Concomitant]
     Dates: start: 2015
  2. IMIQUIMOD CREAM, 5% [Suspect]
     Active Substance: IMIQUIMOD
     Indication: PRECANCEROUS SKIN LESION
     Route: 061
     Dates: start: 20160318, end: 20160325

REACTIONS (8)
  - Hyperaesthesia [Unknown]
  - Feeling cold [Unknown]
  - Back pain [Unknown]
  - Malaise [Unknown]
  - Pyrexia [Unknown]
  - Mouth ulceration [Unknown]
  - Swelling face [None]
  - Myalgia [Unknown]

NARRATIVE: CASE EVENT DATE: 20160318
